FAERS Safety Report 9292280 (Version 1)
Quarter: 2013Q2

REPORT INFORMATION
  Report Type: Spontaneous
  Country: US (occurrence: US)
  Receive Date: 20130516
  Receipt Date: 20130516
  Transmission Date: 20140414
  Serious: Yes (Other)
  Sender: FDA-Public Use
  Company Number: US-NOVOPROD-377568

PATIENT
  Sex: Female

DRUGS (1)
  1. VAGIFEM LD [Suspect]
     Indication: HORMONE REPLACEMENT THERAPY
     Dosage: 10 MCG DAILY
     Route: 067
     Dates: start: 2003

REACTIONS (1)
  - Uterine cancer [Not Recovered/Not Resolved]
